FAERS Safety Report 21241716 (Version 1)
Quarter: 2022Q3

REPORT INFORMATION
  Report Type: Spontaneous
  Country: RU (occurrence: None)
  Receive Date: 20220823
  Receipt Date: 20220823
  Transmission Date: 20221026
  Serious: Yes (Other)
  Sender: FDA-Public Use
  Company Number: RU-ROCHE-3164079

PATIENT
  Age: 65 Year
  Sex: Male

DRUGS (2)
  1. VEMURAFENIB [Suspect]
     Active Substance: VEMURAFENIB
     Indication: Malignant melanoma stage I
     Route: 065
  2. COBIMETINIB [Suspect]
     Active Substance: COBIMETINIB
     Indication: Malignant melanoma stage I
     Route: 065

REACTIONS (3)
  - Acquired haemophilia [Unknown]
  - Anaemia [Unknown]
  - Hyperthermia [Unknown]
